FAERS Safety Report 18826658 (Version 1)
Quarter: 2021Q1

REPORT INFORMATION
  Report Type: Report from Study
  Country: US (occurrence: US)
  Receive Date: 20210202
  Receipt Date: 20210202
  Transmission Date: 20210419
  Serious: Yes (Other)
  Sender: FDA-Public Use
  Company Number: US-TAKEDA-2021TUS003495

PATIENT
  Sex: Female

DRUGS (1)
  1. VON WILLEBRAND FACTOR [Suspect]
     Active Substance: VON WILLEBRAND FACTOR HUMAN
     Indication: HAEMORRHAGE PROPHYLAXIS
     Dosage: UNK
     Route: 042
     Dates: start: 20090301

REACTIONS (5)
  - Exposure during pregnancy [Unknown]
  - Pain [Recovering/Resolving]
  - Haemorrhage [Recovering/Resolving]
  - Inability to afford medication [Unknown]
  - Labour pain [Unknown]
